FAERS Safety Report 10049354 (Version 1)
Quarter: 2014Q2

REPORT INFORMATION
  Report Type: Spontaneous
  Country: FR (occurrence: FR)
  Receive Date: 20140401
  Receipt Date: 20140401
  Transmission Date: 20141212
  Serious: Yes (Death)
  Sender: FDA-Public Use
  Company Number: FR-ROCHE-1373095

PATIENT
  Age: 54 Year
  Sex: Female
  Weight: 45 kg

DRUGS (6)
  1. PERJETA [Suspect]
     Indication: BREAST CANCER
     Route: 065
  2. PERJETA [Suspect]
     Route: 042
     Dates: start: 20140117, end: 20140117
  3. HERCEPTIN [Suspect]
     Indication: BREAST CANCER
     Route: 065
  4. HERCEPTIN [Suspect]
     Route: 042
     Dates: start: 20140117, end: 20140117
  5. OXALIPLATIN ACCORD [Suspect]
     Indication: BREAST CANCER
     Route: 065
  6. OXALIPLATIN ACCORD [Suspect]
     Route: 042
     Dates: start: 20140117, end: 20140117

REACTIONS (2)
  - Vomiting [Fatal]
  - Renal failure acute [Fatal]
